FAERS Safety Report 6183941-7 (Version None)
Quarter: 2009Q2

REPORT INFORMATION
  Report Type: 
  Country: None (occurrence: None)
  Receive Date: 20090508
  Receipt Date: 20090429
  Transmission Date: 20091009
  Serious: Yes (Other)
  Sender: FDA-Public Use
  Company Number: DE-PFIZER INC-2009199539

PATIENT
  Age: 74 Year

DRUGS (9)
  1. CLINDAMYCIN HCL [Suspect]
     Indication: POST PROCEDURAL COMPLICATION
     Dosage: 300 MG, 3X/DAY
     Dates: start: 20090414, end: 20090416
  2. SULPIRIDE [Concomitant]
     Indication: DEPRESSION
     Dosage: 25 MG, 1X/DAY
     Route: 048
  3. PRAVASTATIN [Concomitant]
     Indication: HYPERCHOLESTEROLAEMIA
     Dosage: 40 MG, 1X/DAY
  4. OMEP [Concomitant]
     Indication: GASTROOESOPHAGEAL REFLUX DISEASE
     Dosage: 10 MG, 1X/DAY
  5. ESTRADERM [Concomitant]
     Indication: POSTMENOPAUSE
  6. IBUPROFEN [Concomitant]
     Indication: IMPLANT SITE PAIN
     Dosage: 200 MG, 2X/DAY
     Route: 048
     Dates: start: 20090401, end: 20090411
  7. ARNICA EXTRACT [Concomitant]
     Indication: IMPLANT SITE PAIN
     Dosage: UNK
     Dates: start: 20090401, end: 20090411
  8. REACTINE [Concomitant]
     Indication: SEASONAL ALLERGY
     Dosage: UNK
     Dates: start: 20090413
  9. ULTRACAIN [Concomitant]
     Indication: LOCAL ANAESTHESIA
     Dosage: UNK
     Dates: start: 20090414, end: 20090414

REACTIONS (2)
  - ARTHRALGIA [None]
  - HYPOTONIA [None]
